FAERS Safety Report 6487299-5 (Version None)
Quarter: 2009Q4

REPORT INFORMATION
  Report Type: 
  Country: None (occurrence: None)
  Receive Date: 20091210
  Receipt Date: 20091204
  Transmission Date: 20100525
  Serious: Yes (Other)
  Sender: FDA-Public Use
  Company Number: NO-ROCHE-673101

PATIENT
  Sex: Female

DRUGS (2)
  1. TAMIFLU [Suspect]
     Indication: H1N1 INFLUENZA
     Route: 048
     Dates: start: 20091019, end: 20091021
  2. SOTALOL HCL [Concomitant]
     Indication: ARRHYTHMIA
     Route: 048
     Dates: start: 20080101

REACTIONS (5)
  - COORDINATION ABNORMAL [None]
  - FATIGUE [None]
  - FINE MOTOR DELAY [None]
  - MUSCULAR WEAKNESS [None]
  - PARAESTHESIA [None]
